FAERS Safety Report 10180835 (Version 1)
Quarter: 2014Q2

REPORT INFORMATION
  Report Type: Spontaneous
  Country: US (occurrence: US)
  Receive Date: 20140519
  Receipt Date: 20140519
  Transmission Date: 20141212
  Serious: No
  Sender: FDA-Public Use
  Company Number: US-AMGEN INC.-USASP2014012645

PATIENT
  Age: 64 Year
  Sex: Female

DRUGS (5)
  1. PROLIA [Suspect]
     Indication: OSTEOPOROSIS
     Dosage: UNK
     Route: 065
     Dates: start: 201209
  2. ARIMIDEX [Concomitant]
     Dosage: UNK
     Route: 065
     Dates: start: 201212, end: 201305
  3. CALCIUM [Concomitant]
     Dosage: UNK
     Route: 065
  4. VITAMIN D                          /00107901/ [Concomitant]
     Dosage: 2000 IU, UNK
     Route: 065
  5. BIOTIN [Concomitant]
     Indication: HAIR DISORDER
     Dosage: UNK
     Route: 065

REACTIONS (4)
  - Blood cholesterol increased [Not Recovered/Not Resolved]
  - Feeling abnormal [Unknown]
  - Neuralgia [Unknown]
  - Malaise [Unknown]
